FAERS Safety Report 21148596 (Version 3)
Quarter: 2022Q3

REPORT INFORMATION
  Report Type: Spontaneous
  Country: US (occurrence: US)
  Receive Date: 20220729
  Receipt Date: 20220920
  Transmission Date: 20221026
  Serious: Yes (Other)
  Sender: FDA-Public Use
  Company Number: US-PFIZER INC-PV202200032202

PATIENT
  Sex: Male

DRUGS (1)
  1. DEXTROSE [Suspect]
     Active Substance: DEXTROSE
     Dosage: UNK

REACTIONS (2)
  - Wrong technique in device usage process [Unknown]
  - Haemorrhage [Unknown]

NARRATIVE: CASE EVENT DATE: 20220101
